FAERS Safety Report 9240053 (Version 1)
Quarter: 2013Q2

REPORT INFORMATION
  Report Type: Spontaneous
  Country: US (occurrence: US)
  Receive Date: 20130418
  Receipt Date: 20130418
  Transmission Date: 20140414
  Serious: No
  Sender: FDA-Public Use
  Company Number: US-PFIZER INC-2013120701

PATIENT
  Age: 62 Year
  Sex: Male

DRUGS (2)
  1. CHLORTHALIDONE [Suspect]
     Dosage: 500 MG, UNK
     Route: 042
  2. BUMEX [Suspect]
     Dosage: 8 MG, UNK
     Route: 042

REACTIONS (1)
  - Urine output decreased [Unknown]
